FAERS Safety Report 19580703 (Version 1)
Quarter: 2021Q3

REPORT INFORMATION
  Report Type: Spontaneous
  Country: US (occurrence: US)
  Receive Date: 20210719
  Receipt Date: 20210719
  Transmission Date: 20211014
  Serious: No
  Sender: FDA-Public Use
  Company Number: US-NOVOPROD-800974

PATIENT
  Sex: Male
  Weight: 71.66 kg

DRUGS (13)
  1. ASPIRIN 81 [Concomitant]
     Active Substance: ASPIRIN
     Indication: PRODUCT USED FOR UNKNOWN INDICATION
     Dosage: 81 MG, QD
     Route: 048
  2. CRESTOR [Concomitant]
     Active Substance: ROSUVASTATIN CALCIUM
     Indication: PRODUCT USED FOR UNKNOWN INDICATION
     Dosage: 10 MG, QD
     Route: 048
  3. VASCEPA [Concomitant]
     Active Substance: ICOSAPENT ETHYL
     Indication: PRODUCT USED FOR UNKNOWN INDICATION
     Dosage: 2 G, BID
     Route: 048
     Dates: start: 20190731
  4. FOLTX [Concomitant]
     Active Substance: CYANOCOBALAMIN CO-57\FOLIC ACID\PYRIDOXINE HYDROCHLORIDE
     Indication: PRODUCT USED FOR UNKNOWN INDICATION
     Dosage: 1 TABLET DAILY
     Route: 048
  5. TRESIBA [Concomitant]
     Active Substance: INSULIN DEGLUDEC
     Indication: TYPE 2 DIABETES MELLITUS
     Dosage: 50 UNITS EVERY DAY AT 9PM
     Route: 058
     Dates: start: 20210426, end: 20210426
  6. WELCHOL [Concomitant]
     Active Substance: COLESEVELAM HYDROCHLORIDE
     Indication: PRODUCT USED FOR UNKNOWN INDICATION
     Dosage: 3.75 G, QD (DISSOLVED IN 120?240 ML OF WATER ; STIR AND DRINK WITH A MEAL)
     Route: 048
  7. BRILINTA [Concomitant]
     Active Substance: TICAGRELOR
     Indication: PRODUCT USED FOR UNKNOWN INDICATION
     Dosage: 90 MG, BID
     Route: 048
     Dates: start: 20160729
  8. XALATAN [Concomitant]
     Active Substance: LATANOPROST
     Indication: PRODUCT USED FOR UNKNOWN INDICATION
     Dosage: 1 DROP INTO AFFECTED EYE(S) IN THE EVENING
     Route: 047
  9. LISINOPRIL. [Concomitant]
     Active Substance: LISINOPRIL
     Indication: PRODUCT USED FOR UNKNOWN INDICATION
     Dosage: 40 MG, QD
     Route: 048
     Dates: start: 20200122, end: 20200122
  10. OZEMPIC [Suspect]
     Active Substance: SEMAGLUTIDE
     Indication: LATENT AUTOIMMUNE DIABETES IN ADULTS
     Dosage: 0.25 MG, QW
     Route: 058
     Dates: start: 20210324, end: 2021
  11. ELIDEL [Concomitant]
     Active Substance: PIMECROLIMUS
     Indication: PRODUCT USED FOR UNKNOWN INDICATION
     Dosage: APPLY A THIN LAYER TO AFFECTED AREAS; RUB IN GENTLY AND COMPLETELY
     Route: 061
  12. OZEMPIC [Suspect]
     Active Substance: SEMAGLUTIDE
     Dosage: 0.50 MG, QW (EVERY SUNDAY)
     Route: 065
     Dates: start: 2021, end: 20210428
  13. METOPROLOL SUCCINATE. [Concomitant]
     Active Substance: METOPROLOL SUCCINATE
     Indication: PRODUCT USED FOR UNKNOWN INDICATION
     Dosage: 25 MG, QD
     Route: 048
     Dates: start: 20200604

REACTIONS (10)
  - Feeling abnormal [Recovered/Resolved]
  - Abdominal distension [Recovered/Resolved]
  - Flatulence [Unknown]
  - Early satiety [Unknown]
  - Body temperature increased [Recovered/Resolved]
  - Blood glucose increased [Recovered/Resolved]
  - Gastrooesophageal reflux disease [Unknown]
  - Drug ineffective [Recovered/Resolved]
  - Taste disorder [Unknown]
  - Weight decreased [Unknown]

NARRATIVE: CASE EVENT DATE: 2021
